FAERS Safety Report 16646770 (Version 1)
Quarter: 2019Q3

REPORT INFORMATION
  Report Type: Spontaneous
  Country: JP (occurrence: JP)
  Receive Date: 20190730
  Receipt Date: 20190730
  Transmission Date: 20191004
  Serious: Yes (Hospitalization, Other)
  Sender: FDA-Public Use
  Company Number: JP-PFIZER INC-2019313967

PATIENT
  Sex: Female

DRUGS (2)
  1. SOLANAX [Suspect]
     Active Substance: ALPRAZOLAM
     Dosage: 3 DF, DAILY
     Route: 048
  2. SOLANAX [Suspect]
     Active Substance: ALPRAZOLAM
     Dosage: 0.5 DF, 3X/DAY
     Route: 048

REACTIONS (10)
  - Pneumonia [Unknown]
  - Weight increased [Unknown]
  - Anal ulcer [Unknown]
  - Anal haemorrhage [Unknown]
  - Hypokinesia [Unknown]
  - Hypersomnia [Unknown]
  - Tremor [Unknown]
  - Hallucination [Unknown]
  - Diarrhoea [Recovered/Resolved]
  - Hallucination, auditory [Unknown]

NARRATIVE: CASE EVENT DATE: 201805
